FAERS Safety Report 23194572 (Version 2)
Quarter: 2024Q2

REPORT INFORMATION
  Report Type: Spontaneous
  Country: US (occurrence: US)
  Receive Date: 20231117
  Receipt Date: 20240404
  Transmission Date: 20240715
  Serious: Yes (Other)
  Sender: FDA-Public Use
  Company Number: US-CHEPLA-2023014482

PATIENT
  Age: 18 Year
  Weight: 129 kg

DRUGS (5)
  1. OLANZAPINE PAMOATE [Suspect]
     Active Substance: OLANZAPINE PAMOATE
     Dosage: FREQUENCY: HS
     Dates: start: 20230920
  2. OLANZAPINE PAMOATE [Suspect]
     Active Substance: OLANZAPINE PAMOATE
     Dosage: ROUTE: VENTROGLUTEAL MUSCLE
     Dates: start: 20231109
  3. TRAZODONE [Concomitant]
     Active Substance: TRAZODONE HYDROCHLORIDE
     Dosage: FREQUENCY: HS
     Dates: start: 20230920
  4. LAMICTAL [Concomitant]
     Active Substance: LAMOTRIGINE
     Dosage: FREQUENCY: HS
     Dates: start: 20231101
  5. DEPAKOTE [Concomitant]
     Active Substance: DIVALPROEX SODIUM
     Dosage: DOSAGE FORM: EXTENDED RELEASE (ER); FREQUENCY: HS
     Dates: start: 20230920

REACTIONS (1)
  - Post-injection delirium sedation syndrome [Recovered/Resolved]

NARRATIVE: CASE EVENT DATE: 20231109
